FAERS Safety Report 20506623 (Version 1)
Quarter: 2022Q1

REPORT INFORMATION
  Report Type: Spontaneous
  Country: US (occurrence: None)
  Receive Date: 20220222
  Receipt Date: 20220222
  Transmission Date: 20220424
  Serious: Yes (Other)
  Sender: FDA-Public Use
  Company Number: None

PATIENT
  Age: 64 Year
  Sex: Female
  Weight: 69.75 kg

DRUGS (4)
  1. TABRECTA [Suspect]
     Active Substance: CAPMATINIB
     Indication: Non-small cell lung cancer
     Dosage: FREQUENCY : TWICE A DAY;?
     Route: 048
     Dates: start: 20211201, end: 20220111
  2. ADVIL [Concomitant]
     Active Substance: IBUPROFEN
  3. TUMS [Concomitant]
     Active Substance: CALCIUM CARBONATE
  4. VITAMIN D3 [Concomitant]
     Active Substance: CHOLECALCIFEROL

REACTIONS (3)
  - Transaminases increased [None]
  - Hyperbilirubinaemia [None]
  - Therapy interrupted [None]

NARRATIVE: CASE EVENT DATE: 20220111
